FAERS Safety Report 13716580 (Version 6)
Quarter: 2019Q1

REPORT INFORMATION
  Report Type: Spontaneous
  Country: US (occurrence: US)
  Receive Date: 20170705
  Receipt Date: 20190215
  Transmission Date: 20190417
  Serious: Yes (Congenital Anomaly, Other)
  Sender: FDA-Public Use
  Company Number: PHEH2017US020423

PATIENT
  Sex: Male

DRUGS (2)
  1. ZOFRAN [Suspect]
     Active Substance: ONDANSETRON HYDROCHLORIDE
     Indication: FOETAL EXPOSURE DURING PREGNANCY
     Route: 064
  2. ONDANSETRON [Suspect]
     Active Substance: ONDANSETRON
     Indication: FOETAL EXPOSURE DURING PREGNANCY
     Dosage: MOTHER DOSE: 04 MG, PRN
     Route: 064

REACTIONS (35)
  - Left-to-right cardiac shunt [Unknown]
  - Foetal exposure during pregnancy [Unknown]
  - Cardiomegaly [Unknown]
  - Poor weight gain neonatal [Unknown]
  - Ear pain [Unknown]
  - Pyrexia [Unknown]
  - Diarrhoea [Unknown]
  - Headache [Unknown]
  - Right atrial enlargement [Unknown]
  - Tracheomalacia [Unknown]
  - Pharyngitis streptococcal [Unknown]
  - Ebstein^s anomaly [Unknown]
  - Left ventricular enlargement [Unknown]
  - Neonatal respiratory distress [Unknown]
  - Neonatal tachypnoea [Unknown]
  - Speech disorder [Unknown]
  - Pneumonia [Unknown]
  - Upper respiratory tract infection [Unknown]
  - Otitis media [Unknown]
  - Patent ductus arteriosus [Unknown]
  - Tricuspid valve incompetence [Unknown]
  - Cardiac failure congestive [Unknown]
  - Atrial septal defect [Unknown]
  - Ventricular septal defect [Unknown]
  - Radius fracture [Unknown]
  - Oropharyngeal pain [Unknown]
  - Pulmonary oedema [Unknown]
  - Lung hyperinflation [Unknown]
  - Gastroenteritis [Unknown]
  - Dyspnoea [Unknown]
  - Pulmonary hypertension [Unknown]
  - Pleural effusion [Unknown]
  - Injury [Unknown]
  - Hyperhidrosis [Unknown]
  - Ulna fracture [Unknown]
